FAERS Safety Report 7879905-5 (Version None)
Quarter: 2011Q4

REPORT INFORMATION
  Report Type: 
  Country: None (occurrence: None)
  Receive Date: 20111101
  Receipt Date: 20111028
  Transmission Date: 20120403
  Serious: Yes (Other)
  Sender: FDA-Public Use
  Company Number: US-PFIZER INC-2010111349

PATIENT
  Sex: Female
  Weight: 93.424 kg

DRUGS (15)
  1. CHANTIX [Interacting]
     Dosage: 1 MG, 2X/DAY
     Route: 048
     Dates: start: 20110401, end: 20110601
  2. AMLODIPINE [Concomitant]
     Indication: HYPERTENSION
     Dosage: 10 MG, 1X/DAY
  3. ALPRAZOLAM [Concomitant]
     Dosage: 1 MG, DAILY
     Route: 048
  4. NEXIUM [Concomitant]
     Dosage: 40 MG, DAILY
     Route: 048
  5. AMITRIPTYLINE [Concomitant]
     Dosage: 10 MG, DAILY
     Route: 048
  6. XANAX [Concomitant]
     Indication: ANXIETY
     Dosage: 1 MG, 3X/DAY
     Route: 048
  7. SIMVASTATIN [Concomitant]
     Dosage: 80 MG, DAILY
     Route: 048
  8. CIPROFLOXACIN [Interacting]
     Indication: CYSTITIS
     Dosage: 500 MG, 2X/DAY
     Route: 048
  9. FISH OIL [Concomitant]
     Dosage: 2000 MG, DAILY
     Route: 048
  10. ASPIRIN [Concomitant]
     Dosage: 81 MG, UNK
  11. HYDROCODONE [Concomitant]
     Dosage: 7.5 MG, 2X/DAY
     Route: 048
  12. TIZANIDINE HCL [Interacting]
     Indication: MUSCLE RELAXANT THERAPY
     Dosage: 4 MG, 2X/DAY
     Route: 048
  13. CHANTIX [Suspect]
     Indication: SMOKING CESSATION THERAPY
     Dosage: 0.5 MG, 1X/DAY
     Route: 048
     Dates: start: 20100804, end: 20100101
  14. COZAAR [Concomitant]
     Indication: HYPERTENSION
     Dosage: 100 MG, 1X/DAY
     Route: 048
  15. PROVENTIL [Concomitant]
     Dosage: TWO PUFFS AS NEEDED

REACTIONS (3)
  - DRUG INTERACTION [None]
  - HOSTILITY [None]
  - HOMICIDAL IDEATION [None]
